FAERS Safety Report 8975595 (Version 1)
Quarter: 2012Q4

REPORT INFORMATION
  Report Type: 
  Country: US (occurrence: US)
  Receive Date: 20121219
  Receipt Date: 20121219
  Transmission Date: 20130627
  Serious: Yes (Hospitalization)
  Sender: FDA-Public Use
  Company Number: US-PFIZER INC-2012317511

PATIENT
  Age: 78 Year
  Sex: Female

DRUGS (5)
  1. PREMARIN [Suspect]
     Indication: HORMONE REPLACEMENT THERAPY
     Dosage: 1.25 mg, 1x/day
     Route: 048
  2. PREMARIN [Suspect]
     Dosage: 0.9 mg, 1x/day
     Route: 048
     Dates: end: 2012
  3. PREMARIN [Suspect]
     Dosage: 0.9 mg, 1x/day
     Route: 048
     Dates: start: 2012
  4. ZIAC [Concomitant]
     Indication: BLOOD PRESSURE HIGH
     Dosage: 2.5mg/625mg, UNK
  5. AVIANE [Concomitant]
     Dosage: UNK

REACTIONS (4)
  - Cerebrovascular accident [Unknown]
  - Visual impairment [Unknown]
  - Asthenia [Unknown]
  - Visual acuity reduced [Unknown]
